FAERS Safety Report 9192099 (Version 1)
Quarter: 2013Q1

REPORT INFORMATION
  Report Type: Spontaneous
  Country: FR (occurrence: None)
  Receive Date: 20130325
  Receipt Date: 20130325
  Transmission Date: 20140127
  Serious: Yes (Other)
  Sender: FDA-Public Use
  Company Number: 2013-04960

PATIENT
  Age: 57 Year
  Sex: 0

DRUGS (4)
  1. PACLITAXEL (PACLITAXEL) [Suspect]
     Indication: BLADDER TRANSITIONAL CELL CARCINOMA
     Route: 042
  2. PACLITAXEL (PACLITAXEL) [Suspect]
     Indication: BLADDER TRANSITIONAL CELL CARCINOMA
     Route: 042
  3. LAPATINIB (LAPATINIB) [Suspect]
  4. LAPATINIB (LAPATINIB) [Suspect]

REACTIONS (2)
  - Diarrhoea [None]
  - Drug interaction [None]
